FAERS Safety Report 7073443-8 (Version None)
Quarter: 2010Q4

REPORT INFORMATION
  Report Type: 
  Country: None (occurrence: None)
  Receive Date: 20101028
  Receipt Date: 20101028
  Transmission Date: 20110411
  Serious: Yes (Hospitalization)
  Sender: FDA-Public Use
  Company Number: None

PATIENT
  Age: 20 Year
  Sex: Female
  Weight: 63.6 kg

DRUGS (1)
  1. GLYCOPYRROLATE [Suspect]
     Indication: PREOPERATIVE CARE
     Dosage: 0.15MG ONCE IV
     Route: 042
     Dates: start: 20101025, end: 20101025

REACTIONS (2)
  - SINUS TACHYCARDIA [None]
  - VENTRICULAR TACHYCARDIA [None]
